FAERS Safety Report 8961042 (Version 2)
Quarter: 2013Q1

REPORT INFORMATION
  Report Type: Report from Study
  Country: CA (occurrence: CA)
  Receive Date: 20121213
  Receipt Date: 20130207
  Transmission Date: 20140127
  Serious: Yes (Death)
  Sender: FDA-Public Use
  Company Number: PHHY2012CA114494

PATIENT
  Sex: Female

DRUGS (10)
  1. CLOZARIL [Suspect]
     Indication: SCHIZOPHRENIA
     Dosage: UNK UKN, UNK
     Route: 048
     Dates: start: 20051031
  2. CLOZARIL [Suspect]
     Dosage: 125 MG, (25 MG IN THE MORNING AND 100 MG AT BED TIME), DAILY
     Route: 048
  3. METFORMIN [Concomitant]
     Dosage: 1000 MG, BID
  4. INSULIN [Concomitant]
  5. LACTULOSE [Concomitant]
  6. SCALP [Concomitant]
  7. LOSEK IRON [Concomitant]
  8. VANTELIN [Concomitant]
  9. PREDNISON [Concomitant]
     Dosage: 50 MG, UNK
     Dates: start: 20051031
  10. CELEXA [Concomitant]

REACTIONS (1)
  - Aspiration [Fatal]
